FAERS Safety Report 6175606-2 (Version None)
Quarter: 2009Q2

REPORT INFORMATION
  Report Type: 
  Country: None (occurrence: None)
  Receive Date: 20090429
  Receipt Date: 20090415
  Transmission Date: 20091009
  Serious: Yes (Hospitalization, Disabling)
  Sender: FDA-Public Use
  Company Number: 2009S1000133

PATIENT
  Age: 61 Year
  Sex: Male

DRUGS (5)
  1. ACITRETIN [Suspect]
     Indication: PSORIASIS
     Dosage: PO
     Route: 048
     Dates: start: 20090221, end: 20090223
  2. MULTI-VITAMINS [Concomitant]
  3. VITAMIN B /90046501/ [Concomitant]
  4. NICOTINE [Concomitant]
  5. THIAMINE HCL [Concomitant]

REACTIONS (3)
  - AGITATION [None]
  - AMNESIA [None]
  - CONFUSIONAL STATE [None]
